FAERS Safety Report 7218101-1 (Version None)
Quarter: 2011Q1

REPORT INFORMATION
  Report Type: 
  Country: None (occurrence: None)
  Receive Date: 20110110
  Receipt Date: 20101227
  Transmission Date: 20110831
  Serious: Yes (Hospitalization)
  Sender: FDA-Public Use
  Company Number: JP-MERCK-1010USA02804

PATIENT
  Age: 81 Year
  Sex: Female
  Weight: 36 kg

DRUGS (4)
  1. VITAMIN D (UNSPECIFIED) [Concomitant]
     Route: 048
  2. FOSAMAX [Suspect]
     Indication: OSTEOPOROSIS
     Route: 048
     Dates: start: 20071217, end: 20100307
  3. CHOLECALCIFEROL AND VITAMIN A [Concomitant]
     Indication: OSTEOPOROSIS
     Dosage: DAILY DOSE UNKNOWN
     Route: 048
  4. BENET [Suspect]
     Indication: OSTEOPOROSIS
     Route: 048
     Dates: start: 20040716, end: 20071128

REACTIONS (1)
  - FEMUR FRACTURE [None]
